FAERS Safety Report 15579689 (Version 1)
Quarter: 2018Q4

REPORT INFORMATION
  Report Type: Spontaneous
  Country: BR (occurrence: BR)
  Receive Date: 20181102
  Receipt Date: 20181102
  Transmission Date: 20190205
  Serious: Yes (Other)
  Sender: FDA-Public Use
  Company Number: BR-PFIZER INC-2018400910

PATIENT
  Age: 53 Year
  Sex: Male

DRUGS (3)
  1. LORAX [Suspect]
     Active Substance: LORAZEPAM
     Dosage: 2 MG, DAILY (2 TABLETS PER DAY)
     Dates: start: 201808
  2. LORAX [Suspect]
     Active Substance: LORAZEPAM
     Dosage: 2 MG, DAILY (1 TABLET PER DAY)
     Dates: start: 1988, end: 201808
  3. LORAX [Suspect]
     Active Substance: LORAZEPAM
     Indication: SLEEP DISORDER
     Dosage: 1 MG, 1X/DAY (EVERYNIGHT)
     Dates: start: 1988

REACTIONS (3)
  - Prostate cancer [Not Recovered/Not Resolved]
  - Product use in unapproved indication [Not Recovered/Not Resolved]
  - Product use issue [Not Recovered/Not Resolved]

NARRATIVE: CASE EVENT DATE: 1988
